FAERS Safety Report 4492093-0 (Version None)
Quarter: 2004Q4

REPORT INFORMATION
  Report Type: 
  Country: None (occurrence: None)
  Receive Date: 20041101
  Receipt Date: 20041018
  Transmission Date: 20050328
  Serious: Yes (Other)
  Sender: FDA-Public Use
  Company Number: 2004077653

PATIENT
  Sex: Female
  Weight: 136.0791 kg

DRUGS (5)
  1. ZITHROMAX [Suspect]
     Indication: SINUSITIS
     Dates: start: 20040201, end: 20040801
  2. LEVOTHYROXINE SODIUM [Concomitant]
  3. LANSOPRAZOLE [Concomitant]
  4. RANITIDINE HYDROCHLORIDE [Concomitant]
  5. PANTOPRAZOLE (PANTOPRAZOLE) [Concomitant]

REACTIONS (23)
  - ABDOMINAL PAIN UPPER [None]
  - ANGER [None]
  - ASTHMA [None]
  - CONDITION AGGRAVATED [None]
  - CYSTITIS [None]
  - DEHYDRATION [None]
  - DIARRHOEA [None]
  - DRUG INEFFECTIVE [None]
  - DYSPHAGIA [None]
  - DYSPNOEA [None]
  - HAEMATEMESIS [None]
  - HIATUS HERNIA [None]
  - KIDNEY INFECTION [None]
  - LARYNGEAL OEDEMA [None]
  - MENTAL DISORDER [None]
  - OROPHARYNGEAL SWELLING [None]
  - PHARYNGOLARYNGEAL PAIN [None]
  - PRECANCEROUS CELLS PRESENT [None]
  - STRESS SYMPTOMS [None]
  - TOOTH INFECTION [None]
  - VARICES OESOPHAGEAL [None]
  - VOMITING [None]
  - WEIGHT DECREASED [None]
